FAERS Safety Report 5193740-0 (Version None)
Quarter: 2006Q4

REPORT INFORMATION
  Report Type: 
  Country: None (occurrence: None)
  Receive Date: 20061228
  Receipt Date: 20061227
  Transmission Date: 20070319
  Serious: Yes (Other)
  Sender: FDA-Public Use
  Company Number: US-GLAXOSMITHKLINE-A0632629A

PATIENT
  Age: 77 Year
  Sex: Female

DRUGS (3)
  1. COREG [Suspect]
     Indication: HYPERTENSION
     Dosage: 25MG TWICE PER DAY
     Route: 048
     Dates: start: 20060701
  2. TOPROL-XL [Suspect]
     Dates: end: 20060701
  3. LISINOPRIL [Concomitant]

REACTIONS (2)
  - ALOPECIA [None]
  - HEPATIC NEOPLASM [None]
